FAERS Safety Report 6448844-9 (Version None)
Quarter: 2009Q4

REPORT INFORMATION
  Report Type: 
  Country: None (occurrence: None)
  Receive Date: 20091120
  Receipt Date: 20091116
  Transmission Date: 20100525
  Serious: Yes (Other)
  Sender: FDA-Public Use
  Company Number: GXKR2009GB11183

PATIENT
  Age: 30 Year
  Sex: Female

DRUGS (3)
  1. FLUOXETINE (NGX) [Suspect]
     Indication: NARCOLEPSY
     Dosage: UNK
     Route: 065
  2. MODAFINIL [Interacting]
     Indication: NARCOLEPSY
     Dosage: UNK
     Route: 065
  3. CONTRACEPTIVES NOS [Interacting]
     Indication: CONTRACEPTION
     Route: 048

REACTIONS (3)
  - DRUG INTERACTION [None]
  - PREGNANCY ON ORAL CONTRACEPTIVE [None]
  - UNINTENDED PREGNANCY [None]
